FAERS Safety Report 8577977 (Version 45)
Quarter: 2017Q3

REPORT INFORMATION
  Report Type: Report from Study
  Country: CA (occurrence: CA)
  Receive Date: 20120524
  Receipt Date: 20170714
  Transmission Date: 20171128
  Serious: Yes (Death, Hospitalization, Other)
  Sender: FDA-Public Use
  Company Number: PHHY2012CA042928

PATIENT
  Age: 58 Year
  Sex: Female

DRUGS (13)
  1. AFINITOR [Suspect]
     Active Substance: EVEROLIMUS
     Indication: PANCREATIC NEUROENDOCRINE TUMOUR METASTATIC
     Dosage: 10 MG, QD
     Route: 048
     Dates: start: 20100930
  2. HUMALOG MIX75/25 [Concomitant]
     Active Substance: INSULIN LISPRO
     Dosage: 33 U (23 U AT BREAKFAST AND 11 UNITS AT SUPPER)
     Route: 065
  3. MORPHINE [Concomitant]
     Active Substance: MORPHINE
     Indication: PAIN
     Dosage: 0.5 DF, Q2H
     Route: 048
     Dates: start: 20160121
  4. HUMALOG MIX75/25 [Concomitant]
     Active Substance: INSULIN LISPRO
     Indication: PRODUCT USED FOR UNKNOWN INDICATION
     Route: 065
  5. SANDOSTATIN LAR DEPOT [Suspect]
     Active Substance: OCTREOTIDE ACETATE
     Indication: PANCREATIC NEUROENDOCRINE TUMOUR METASTATIC
     Dosage: 20 MG, QMO (EVERY 4 WEEKS)
     Route: 030
     Dates: start: 20090810, end: 201706
  6. MORPHINE [Concomitant]
     Active Substance: MORPHINE
     Indication: FLUID RETENTION
     Dosage: 2.5 MG, QID (4 TIMES PER DAY)
     Route: 048
  7. RIFAXIMIN [Concomitant]
     Active Substance: RIFAXIMIN
     Indication: PRODUCT USED FOR UNKNOWN INDICATION
     Dosage: 550 MG, BID
     Route: 065
     Dates: start: 201612
  8. LACTULOSE. [Concomitant]
     Active Substance: LACTULOSE
     Indication: PRODUCT USED FOR UNKNOWN INDICATION
     Dosage: 30 MG, FLOUR QID
     Route: 065
     Dates: start: 201612
  9. DOMPERIDONE [Concomitant]
     Active Substance: DOMPERIDONE
     Indication: PRODUCT USED FOR UNKNOWN INDICATION
     Dosage: 10 MG, TID
     Route: 048
  10. MORPHINE [Concomitant]
     Active Substance: MORPHINE
     Indication: MUSCULOSKELETAL PAIN
     Dosage: 0.5 DF, Q4H
     Route: 048
  11. MORPHINE [Concomitant]
     Active Substance: MORPHINE
     Indication: ABDOMINAL PAIN
     Dosage: 5 MG,  (4-6 HOURS PRN)
     Route: 048
  12. POLYETHYLENE GLYCOL 3350. [Concomitant]
     Active Substance: POLYETHYLENE GLYCOL 3350
     Indication: PRODUCT USED FOR UNKNOWN INDICATION
     Dosage: 17 G, QD (ONCE DAILY)
     Route: 065
     Dates: start: 201612
  13. ZOPICLONE [Suspect]
     Active Substance: ZOPICLONE
     Indication: PRODUCT USED FOR UNKNOWN INDICATION
     Route: 065

REACTIONS (70)
  - Electrolyte imbalance [Unknown]
  - Sinus congestion [Recovering/Resolving]
  - Disorientation [Unknown]
  - Anxiety [Unknown]
  - Swelling [Unknown]
  - Injection site erythema [Recovered/Resolved]
  - Urinary tract infection [Unknown]
  - Dysuria [Unknown]
  - Dehydration [Recovering/Resolving]
  - Malaise [Unknown]
  - Abdominal distension [Unknown]
  - Hepatomegaly [Unknown]
  - Gastrointestinal sounds abnormal [Unknown]
  - Functional gastrointestinal disorder [Recovered/Resolved]
  - Urinary incontinence [Unknown]
  - Influenza [Unknown]
  - Abdominal discomfort [Unknown]
  - Alopecia [Unknown]
  - Pneumonia bacterial [Unknown]
  - Glucose urine present [Unknown]
  - Gastrooesophageal reflux disease [Unknown]
  - Pollakiuria [Unknown]
  - Fluid retention [Unknown]
  - Injection site reaction [Recovered/Resolved]
  - Hepatic encephalopathy [Unknown]
  - Delirium [Unknown]
  - Rhinorrhoea [Recovering/Resolving]
  - Gait disturbance [Unknown]
  - Eye injury [Unknown]
  - Feeling abnormal [Unknown]
  - Abdominal tenderness [Unknown]
  - Hypothyroidism [Unknown]
  - Infection [Unknown]
  - Bronchitis [Recovered/Resolved]
  - Blood phosphorus decreased [Unknown]
  - Type 1 diabetes mellitus [Unknown]
  - Abdominal pain [Recovering/Resolving]
  - Abdominal rigidity [Unknown]
  - Rotator cuff syndrome [Unknown]
  - Blood sodium decreased [Recovering/Resolving]
  - Blood pressure increased [Unknown]
  - Flatulence [Recovering/Resolving]
  - Fatigue [Unknown]
  - Death [Fatal]
  - Blood urine present [Unknown]
  - Fall [Unknown]
  - Dysarthria [Unknown]
  - Memory impairment [Unknown]
  - Nasopharyngitis [Recovering/Resolving]
  - Tenderness [Unknown]
  - Polyuria [Unknown]
  - Confusional state [Unknown]
  - Malignant neoplasm progression [Unknown]
  - Musculoskeletal pain [Not Recovered/Not Resolved]
  - Epigastric discomfort [Unknown]
  - Dysstasia [Unknown]
  - Rash macular [Unknown]
  - Hepatic enzyme increased [Unknown]
  - Constipation [Unknown]
  - Blood pressure decreased [Unknown]
  - Pyrexia [Unknown]
  - Breath odour [Unknown]
  - Incoherent [Unknown]
  - Weight decreased [Unknown]
  - Arthralgia [Unknown]
  - Needle issue [Unknown]
  - Blood glucose decreased [Recovering/Resolving]
  - Blood glucose increased [Unknown]
  - Diarrhoea [Unknown]
  - Injection site pain [Unknown]

NARRATIVE: CASE EVENT DATE: 20120423
